FAERS Safety Report 14203586 (Version 1)
Quarter: 2017Q4

REPORT INFORMATION
  Report Type: Spontaneous
  Country: US (occurrence: None)
  Receive Date: 20171117
  Receipt Date: 20171117
  Transmission Date: 20180321
  Serious: No
  Sender: FDA-Public Use
  Company Number: None

PATIENT
  Age: 56 Year
  Sex: Female

DRUGS (1)
  1. EXEMESTANE 25MG WEST-WARD PHARMACEUTICAL CORP, A SUBSIDIARY OF HIKMA [Suspect]
     Active Substance: EXEMESTANE
     Indication: BREAST CANCER FEMALE
     Route: 048
     Dates: start: 20170428, end: 20170930

REACTIONS (2)
  - Metastasis [None]
  - Therapy cessation [None]

NARRATIVE: CASE EVENT DATE: 20170930
